FAERS Safety Report 22126590 (Version 1)
Quarter: 2023Q1

REPORT INFORMATION
  Report Type: Spontaneous
  Country: US (occurrence: None)
  Receive Date: 20230322
  Receipt Date: 20230322
  Transmission Date: 20230417
  Serious: No
  Sender: FDA-Public Use
  Company Number: None

PATIENT

DRUGS (1)
  1. AMIODARONE [Suspect]
     Active Substance: AMIODARONE

REACTIONS (5)
  - Ischaemic hepatitis [None]
  - Incorrect dose administered [None]
  - Drug titration error [None]
  - Product dispensing error [None]
  - Product prescribing error [None]
